FAERS Safety Report 18391017 (Version 1)
Quarter: 2020Q4

REPORT INFORMATION
  Report Type: Spontaneous
  Country: US (occurrence: US)
  Receive Date: 20201015
  Receipt Date: 20201015
  Transmission Date: 20210114
  Serious: Yes (Hospitalization)
  Sender: FDA-Public Use
  Company Number: None

PATIENT
  Sex: Male

DRUGS (5)
  1. PIMECROLIMUS CRE [Concomitant]
  2. HUMIRA [Suspect]
     Active Substance: ADALIMUMAB
  3. PERMETHRIN. [Concomitant]
     Active Substance: PERMETHRIN
  4. ZOLPIDEM [Concomitant]
     Active Substance: ZOLPIDEM TARTRATE
  5. VITAMIN D [Concomitant]
     Active Substance: VITAMIN D NOS

REACTIONS (3)
  - Illness [None]
  - Therapy interrupted [None]
  - Eating disorder [None]
